FAERS Safety Report 15539509 (Version 4)
Quarter: 2021Q1

REPORT INFORMATION
  Report Type: Report from Study
  Country: US (occurrence: US)
  Receive Date: 20181023
  Receipt Date: 20210223
  Transmission Date: 20210419
  Serious: Yes (Other)
  Sender: FDA-Public Use
  Company Number: US-ALEXION PHARMACEUTICALS INC-A201812785

PATIENT
  Age: 45 Year
  Sex: Female
  Weight: 68.48 kg

DRUGS (1)
  1. SOLIRIS [Suspect]
     Active Substance: ECULIZUMAB
     Indication: PAROXYSMAL NOCTURNAL HAEMOGLOBINURIA
     Dosage: 900 MG, Q2W
     Route: 042
     Dates: start: 20110920

REACTIONS (19)
  - Haemolysis [Unknown]
  - Blood urine present [Recovered/Resolved]
  - Pain in extremity [Unknown]
  - Yellow skin [Unknown]
  - Fall [Unknown]
  - Fatigue [Unknown]
  - Dizziness [Unknown]
  - Haematocrit decreased [Unknown]
  - Ecchymosis [Unknown]
  - Serum ferritin decreased [Unknown]
  - Condition aggravated [Recovered/Resolved]
  - Blood iron decreased [Not Recovered/Not Resolved]
  - Constipation [Recovered/Resolved]
  - Vaginal haemorrhage [Unknown]
  - Jaundice [Recovered/Resolved]
  - Back pain [Unknown]
  - Blood bilirubin increased [Unknown]
  - Headache [Unknown]
  - Haemoglobin decreased [Unknown]

NARRATIVE: CASE EVENT DATE: 20180831
